FAERS Safety Report 5269762-8 (Version None)
Quarter: 2007Q1

REPORT INFORMATION
  Report Type: 
  Country: None (occurrence: None)
  Receive Date: 20061214
  Receipt Date: 20060925
  Transmission Date: 20070707
  Serious: Yes (Hospitalization, Other)
  Sender: FDA-Public Use
  Company Number: 2006118477

PATIENT
  Sex: Female

DRUGS (3)
  1. BEXTRA [Suspect]
     Dates: start: 20030515, end: 20040408
  2. CELEBREX [Suspect]
     Dates: start: 20010704, end: 20030515
  3. VIOXX [Suspect]
     Dates: start: 20000706, end: 20010704

REACTIONS (3)
  - CARDIAC FAILURE CONGESTIVE [None]
  - MYOCARDIAL INFARCTION [None]
  - PULMONARY EMBOLISM [None]
